FAERS Safety Report 19578728 (Version 1)
Quarter: 2021Q3

REPORT INFORMATION
  Report Type: Spontaneous
  Country: JP (occurrence: JP)
  Receive Date: 20210719
  Receipt Date: 20210719
  Transmission Date: 20211014
  Serious: Yes (Death)
  Sender: FDA-Public Use
  Company Number: JP-SPECGX-T202101326

PATIENT
  Age: 57 Year
  Sex: Female

DRUGS (13)
  1. NARUVEIN [Concomitant]
     Active Substance: HYDROMORPHONE HYDROCHLORIDE
     Indication: CANCER PAIN
     Dosage: 28.8 MILLIGRAM, QD
     Route: 058
     Dates: start: 20210512, end: 20210513
  2. QUETIAPINE. [Suspect]
     Active Substance: QUETIAPINE
     Indication: MENTAL DISORDER
     Dosage: 100 MILLIGRAM, QD (25 MG 4/DAY)
     Route: 048
     Dates: start: 20210520, end: 20210522
  3. BELSOMRA [Concomitant]
     Active Substance: SUVOREXANT
     Indication: INSOMNIA
     Dosage: 15 MILLIGRAM
     Route: 048
     Dates: end: 20210521
  4. NARUVEIN [Concomitant]
     Active Substance: HYDROMORPHONE HYDROCHLORIDE
     Dosage: 9.6 MILLIGRAM, QD
     Route: 058
     Dates: start: 20210521, end: 20210522
  5. KETAMINE [Concomitant]
     Active Substance: KETAMINE
     Indication: CANCER PAIN
     Dosage: 50 MILLIGRAM, QD
     Route: 058
     Dates: start: 20210514, end: 20210517
  6. NARUSUS [Concomitant]
     Active Substance: HYDROMORPHONE HYDROCHLORIDE
     Indication: CANCER PAIN
     Dosage: UNK (24 MG TABLET 5 T/DAY TO 6 T/DAY)
     Route: 048
     Dates: end: 20210512
  7. TRAZODONE HYDROCHLORIDE. [Concomitant]
     Active Substance: TRAZODONE HYDROCHLORIDE
     Indication: INSOMNIA
     Dosage: 75 MILLIGRAM
     Route: 048
     Dates: end: 20210521
  8. KETAMINE [Concomitant]
     Active Substance: KETAMINE
     Dosage: 100 MILLIGRAM, QD
     Route: 058
     Dates: start: 20210517, end: 20210519
  9. DECADRON [Concomitant]
     Active Substance: DEXAMETHASONE
     Indication: PRODUCT USED FOR UNKNOWN INDICATION
     Dosage: 2 MILLIGRAM
     Route: 065
     Dates: end: 20210522
  10. TAKECAB [Concomitant]
     Active Substance: VONOPRAZAN FUMARATE
     Indication: PROPHYLAXIS
     Dosage: 20 MILLIGRAM
     Route: 048
     Dates: end: 20210522
  11. NARUVEIN [Concomitant]
     Active Substance: HYDROMORPHONE HYDROCHLORIDE
     Dosage: 36.0 MILLIGRAM, QD
     Route: 058
     Dates: start: 20210513, end: 20210521
  12. METHADONE [Suspect]
     Active Substance: METHADONE HYDROCHLORIDE
     Indication: CANCER PAIN
     Dosage: 30 MILLIGRAM, QD
     Route: 048
     Dates: start: 20210519, end: 20210522
  13. CALONAL [Concomitant]
     Active Substance: ACETAMINOPHEN
     Indication: UTERINE LEIOMYOSARCOMA
     Dosage: 4000 MILLIGRAM
     Route: 048
     Dates: end: 20210522

REACTIONS (5)
  - Metastases to lung [Fatal]
  - Ventricular fibrillation [Fatal]
  - Ventricular tachycardia [Fatal]
  - Uterine leiomyosarcoma [Fatal]
  - Electrocardiogram QT prolonged [Fatal]

NARRATIVE: CASE EVENT DATE: 20210522
